FAERS Safety Report 13067349 (Version 6)
Quarter: 2018Q2

REPORT INFORMATION
  Report Type: Report from Study
  Country: JP (occurrence: JP)
  Receive Date: 20161228
  Receipt Date: 20180627
  Transmission Date: 20180711
  Serious: Yes (Other)
  Sender: FDA-Public Use
  Company Number: JP-ALXN-A201610093AA

PATIENT
  Age: 61 Year
  Sex: Female
  Weight: 84 kg

DRUGS (7)
  1. SOL-MELCORT [Concomitant]
     Active Substance: METHYLPREDNISOLONE SODIUM SUCCINATE
     Indication: HAEMOLYTIC URAEMIC SYNDROME
     Dosage: 80 MG, QD
     Route: 041
     Dates: start: 20160309, end: 20160315
  2. SOL-MELCORT [Concomitant]
     Active Substance: METHYLPREDNISOLONE SODIUM SUCCINATE
     Dosage: 38 MG PER DAY ON AVERAGE, QD
     Route: 041
     Dates: start: 20160316, end: 20160523
  3. ZOSYN [Concomitant]
     Active Substance: PIPERACILLIN SODIUM\TAZOBACTAM SODIUM
     Dosage: 2.25 G, BID
     Route: 041
     Dates: start: 20160425, end: 20160426
  4. ZOSYN [Concomitant]
     Active Substance: PIPERACILLIN SODIUM\TAZOBACTAM SODIUM
     Indication: INFECTION PROPHYLAXIS
     Dosage: 2.25 G, BID
     Route: 041
     Dates: start: 20160317, end: 20160401
  5. PREDONINE [Concomitant]
     Active Substance: PREDNISOLONE
     Indication: HAEMOLYTIC URAEMIC SYNDROME
     Dosage: 121 MG PER DAY ON AVERAGE, QD
     Route: 041
     Dates: start: 20160322, end: 20160817
  6. SOLIRIS [Suspect]
     Active Substance: ECULIZUMAB
     Indication: HAEMOLYTIC URAEMIC SYNDROME
     Dosage: 900 MG, UNK
     Route: 042
     Dates: start: 20160318
  7. PREDNISOLONE. [Concomitant]
     Active Substance: PREDNISOLONE
     Indication: HAEMOLYTIC URAEMIC SYNDROME
     Dosage: 5 MG, QD
     Route: 048
     Dates: start: 20160412, end: 20160507

REACTIONS (4)
  - Infection [Recovering/Resolving]
  - Renal hypertension [Recovered/Resolved]
  - Enterococcal infection [Recovered/Resolved]
  - Cholecystitis [Recovered/Resolved]

NARRATIVE: CASE EVENT DATE: 20160427
